FAERS Safety Report 12321586 (Version 2)
Quarter: 2016Q2

REPORT INFORMATION
  Report Type: Report from Study
  Country: US (occurrence: US)
  Receive Date: 20160502
  Receipt Date: 20160610
  Transmission Date: 20160815
  Serious: Yes (Other)
  Sender: FDA-Public Use
  Company Number: US-GILEAD-2016-0210108

PATIENT
  Age: 52 Year
  Sex: Female

DRUGS (3)
  1. REMODULIN [Suspect]
     Active Substance: TREPROSTINIL
     Indication: PULMONARY HYPERTENSION
     Dosage: 40 NG, Q1MINUTE
     Route: 065
     Dates: start: 20151027
  2. AMBRISENTAN [Suspect]
     Active Substance: AMBRISENTAN
     Indication: PULMONARY HYPERTENSION
     Dosage: 10 MG, QD
     Route: 065
     Dates: start: 20150904
  3. ADCIRCA [Suspect]
     Active Substance: TADALAFIL
     Indication: PRODUCT USED FOR UNKNOWN INDICATION
     Route: 065

REACTIONS (14)
  - Malaise [Unknown]
  - Injection site infection [Recovered/Resolved]
  - Abdominal discomfort [Unknown]
  - Injection site reaction [Unknown]
  - Hyperhidrosis [Unknown]
  - Abdominal distension [Unknown]
  - Nausea [Unknown]
  - Ovarian mass [Not Recovered/Not Resolved]
  - Dyspnoea exertional [Unknown]
  - Diarrhoea [Not Recovered/Not Resolved]
  - Administration site pain [Unknown]
  - Mucous stools [Not Recovered/Not Resolved]
  - Pulmonary hypertension [Unknown]
  - Headache [Unknown]

NARRATIVE: CASE EVENT DATE: 20160302
